FAERS Safety Report 6516518-1 (Version None)
Quarter: 2009Q4

REPORT INFORMATION
  Report Type: 
  Country: None (occurrence: None)
  Receive Date: 20091215
  Receipt Date: 20090610
  Transmission Date: 20100525
  Serious: Yes (Other)
  Sender: FDA-Public Use
  Company Number: ENTC2009-0190

PATIENT
  Sex: Female

DRUGS (2)
  1. STALEVO 100 [Suspect]
     Dosage: 150 MG
  2. SINEMET [Concomitant]

REACTIONS (5)
  - ABASIA [None]
  - ASTHENIA [None]
  - CHROMATURIA [None]
  - DRUG INEFFECTIVE [None]
  - MALAISE [None]
